FAERS Safety Report 6696062-1 (Version None)
Quarter: 2010Q2

REPORT INFORMATION
  Report Type: 
  Country: None (occurrence: None)
  Receive Date: 20100426
  Receipt Date: 20100415
  Transmission Date: 20101027
  Serious: Yes (Hospitalization)
  Sender: FDA-Public Use
  Company Number: PHHY2010MX19853

PATIENT
  Age: 65 Year
  Sex: Female

DRUGS (1)
  1. ACLASTA [Suspect]
     Indication: OSTEOPOROSIS
     Dosage: 1 INJECTION 5 MG/100 ML PER YEAR
     Route: 042
     Dates: start: 20080701

REACTIONS (5)
  - FALL [None]
  - HAND FRACTURE [None]
  - LIMB OPERATION [None]
  - PAIN IN EXTREMITY [None]
  - PROSTHESIS IMPLANTATION [None]
